FAERS Safety Report 6023635-1 (Version None)
Quarter: 2008Q4

REPORT INFORMATION
  Report Type: 
  Country: None (occurrence: None)
  Receive Date: 20081222
  Receipt Date: 20080904
  Transmission Date: 20090506
  Serious: No
  Sender: FDA-Public Use
  Company Number: SPV1-2008-01919

PATIENT
  Sex: Male

DRUGS (2)
  1. VYVANSE [Suspect]
  2. ADDERALL XR 10 [Suspect]

REACTIONS (1)
  - URINARY RETENTION [None]
